FAERS Safety Report 10465777 (Version 4)
Quarter: 2014Q4

REPORT INFORMATION
  Report Type: Report from Study
  Country: KR (occurrence: KR)
  Receive Date: 20140921
  Receipt Date: 20141230
  Transmission Date: 20150528
  Serious: No
  Sender: FDA-Public Use
  Company Number: PHHY2014KR121519

PATIENT
  Age: 21 Year
  Sex: Female

DRUGS (11)
  1. AMN107 [Suspect]
     Active Substance: NILOTINIB
     Dosage: 300 MG, QD
     Route: 048
     Dates: start: 20140124
  2. TYLENOL ER [Concomitant]
     Active Substance: ACETAMINOPHEN
     Indication: PYREXIA
     Dosage: 3 DF, UNK
     Route: 048
     Dates: start: 20131213, end: 20131220
  3. LEROXACIN [Concomitant]
     Indication: PROPHYLAXIS
  4. TYLENOL ER [Concomitant]
     Active Substance: ACETAMINOPHEN
     Indication: ANALGESIC THERAPY
     Dosage: UNK
  5. CODAEWON [Concomitant]
     Indication: PROPHYLAXIS
  6. AMN107 [Suspect]
     Active Substance: NILOTINIB
     Indication: CHRONIC MYELOID LEUKAEMIA
     Dosage: 600 MG, QD
     Route: 048
     Dates: start: 20131028, end: 20140104
  7. TYLENOL ER [Concomitant]
     Active Substance: ACETAMINOPHEN
     Indication: NASOPHARYNGITIS
  8. LEROXACIN [Concomitant]
     Indication: PRODUCT USED FOR UNKNOWN INDICATION
     Dosage: 3 DF, UNK
     Route: 048
     Dates: start: 20131213, end: 20131220
  9. CODAEWON [Concomitant]
     Indication: COUGH
     Dosage: 3 DF, UNK
     Route: 048
     Dates: start: 20131213, end: 20131220
  10. MUCOPECT [Concomitant]
     Indication: PROPHYLAXIS
     Dosage: 90 MG, UNK
     Route: 048
     Dates: start: 20131213, end: 20131220
  11. PSEUDOEPHEDRINE [Concomitant]
     Active Substance: PSEUDOEPHEDRINE
     Indication: PROPHYLAXIS
     Dosage: 180 MG, UNK
     Route: 048
     Dates: start: 20131213, end: 20131220

REACTIONS (2)
  - Neutropenia [Recovered/Resolved]
  - White blood cell count decreased [Unknown]

NARRATIVE: CASE EVENT DATE: 20140103
